FAERS Safety Report 7787361-0 (Version None)
Quarter: 2011Q3

REPORT INFORMATION
  Report Type: 
  Country: None (occurrence: None)
  Receive Date: 20110929
  Receipt Date: 20110919
  Transmission Date: 20111222
  Serious: Yes (Other)
  Sender: FDA-Public Use
  Company Number: PHHY2011DE09602

PATIENT
  Age: 38 Year
  Sex: Male

DRUGS (2)
  1. DIOVAN [Concomitant]
     Dosage: UNK UKN, UNK
     Route: 065
  2. GLEEVEC [Suspect]
     Indication: CHRONIC MYELOID LEUKAEMIA
     Dosage: UNK UKN, UNK
     Route: 048
     Dates: start: 20100701, end: 20110101

REACTIONS (9)
  - DYSPNOEA [None]
  - VISUAL IMPAIRMENT [None]
  - CHRONIC OBSTRUCTIVE PULMONARY DISEASE [None]
  - DYSPEPSIA [None]
  - NAUSEA [None]
  - VOMITING [None]
  - COUGH [None]
  - PAIN [None]
  - FLUID RETENTION [None]
